FAERS Safety Report 9206418 (Version 1)
Quarter: 2013Q2

REPORT INFORMATION
  Report Type: Spontaneous
  Country: GB (occurrence: None)
  Receive Date: 20130401
  Receipt Date: 20130401
  Transmission Date: 20140414
  Serious: Yes (Other)
  Sender: FDA-Public Use
  Company Number: FK201300926

PATIENT
  Age: 77 Year
  Sex: Male

DRUGS (16)
  1. DEXAMETHASONE [Suspect]
     Indication: PLASMA CELL MYELOMA
     Dosage: 20 MG, DAILY DAYS, 1-4, 9-12, 17-20
  2. LENALIDOMIDE (LENALIDOMIDE) (CAPSULE) (LENALIDOMIDE) [Suspect]
     Indication: PLASMA CELL MYELOMA
     Dosage: 25 MG, DAILY, DAYS 1-21
  3. WARFARIN (WARFARIN) [Suspect]
     Indication: PROPHYLAXIS
  4. BORTEZOMIB [Concomitant]
  5. OMEPRAZOLE [Concomitant]
  6. SODIUM CLODRONATE [Concomitant]
  7. MONONITRATE [Concomitant]
  8. CLOPIDOGREL [Concomitant]
  9. ASPIRIN [Concomitant]
  10. ISOSORBIDE [Concomitant]
  11. DILTIAZEM MR [Concomitant]
  12. OMEPRAZOLE [Concomitant]
  13. ATORVASTATIN [Concomitant]
  14. GLYCERYL TRINITRATE [Concomitant]
  15. PARACETAMOL [Concomitant]
  16. CLOPIDOGREL [Concomitant]

REACTIONS (4)
  - Acute myocardial infarction [None]
  - Drug interaction [None]
  - Pulmonary embolism [None]
  - Anticoagulation drug level below therapeutic [None]
